FAERS Safety Report 9758307 (Version 1)
Quarter: 2013Q4

REPORT INFORMATION
  Report Type: Spontaneous
  Country: US (occurrence: US)
  Receive Date: 20131216
  Receipt Date: 20131216
  Transmission Date: 20140711
  Serious: No
  Sender: FDA-Public Use
  Company Number: US-TEVA-413910USA

PATIENT
  Age: 32 Year
  Sex: Female
  Weight: 113.95 kg

DRUGS (1)
  1. PARAGARD 380A [Suspect]
     Indication: CONTRACEPTION
     Route: 015
     Dates: start: 20130531, end: 20130618

REACTIONS (2)
  - Device expulsion [Recovered/Resolved]
  - Abdominal pain [Unknown]
